FAERS Safety Report 19041014 (Version 1)
Quarter: 2021Q1

REPORT INFORMATION
  Report Type: Spontaneous
  Country: GB (occurrence: GB)
  Receive Date: 20210322
  Receipt Date: 20210322
  Transmission Date: 20210420
  Serious: Yes (Other)
  Sender: FDA-Public Use
  Company Number: GB-SUN PHARMACEUTICAL INDUSTRIES LTD-2021RR-286837

PATIENT
  Age: 53 Year
  Sex: Female

DRUGS (2)
  1. CODEINE [Suspect]
     Active Substance: CODEINE
     Indication: PRODUCT USED FOR UNKNOWN INDICATION
     Dosage: UNKNOWN
     Route: 065
  2. BENEPALI [Suspect]
     Active Substance: ETANERCEPT
     Indication: PSORIATIC ARTHROPATHY
     Dosage: 50 MILLIGRAM, 1/WEEK
     Route: 058
     Dates: start: 20191104

REACTIONS (14)
  - Stress [Unknown]
  - Fall [Unknown]
  - Poor quality sleep [Unknown]
  - Depression [Unknown]
  - Pain [Unknown]
  - Anxiety [Unknown]
  - Thinking abnormal [Unknown]
  - Gait disturbance [Unknown]
  - Skin irritation [Unknown]
  - Walking aid user [Unknown]
  - Psoriatic arthropathy [Unknown]
  - Constipation [Unknown]
  - Therapeutic response shortened [Unknown]
  - Tearfulness [Unknown]
